FAERS Safety Report 16325621 (Version 1)
Quarter: 2019Q2

REPORT INFORMATION
  Report Type: Spontaneous
  Country: US (occurrence: US)
  Receive Date: 20190516
  Receipt Date: 20190516
  Transmission Date: 20190711
  Serious: Yes (Hospitalization)
  Sender: FDA-Public Use
  Company Number: None

PATIENT
  Age: 66 Year
  Sex: Female

DRUGS (10)
  1. HUMIRA [Suspect]
     Active Substance: ADALIMUMAB
     Indication: RHEUMATOID ARTHRITIS
     Dosage: ?          OTHER FREQUENCY:EVERY 14 DAYS;?
     Route: 058
     Dates: start: 20151014
  2. MULTIPLE VIT [Concomitant]
  3. VITAMIN D3 [Concomitant]
     Active Substance: CHOLECALCIFEROL
  4. XIIDRA [Concomitant]
     Active Substance: LIFITEGRAST
  5. FOLIC ACID. [Concomitant]
     Active Substance: FOLIC ACID
  6. CLARITIN [Concomitant]
     Active Substance: LORATADINE
  7. GABAPENTIN. [Concomitant]
     Active Substance: GABAPENTIN
  8. METHOTREXATE. [Concomitant]
     Active Substance: METHOTREXATE
  9. CALTRATE [Concomitant]
     Active Substance: CALCIUM CARBONATE
  10. FLONASE [Concomitant]
     Active Substance: FLUTICASONE PROPIONATE

REACTIONS (2)
  - Skin infection [None]
  - Therapy cessation [None]

NARRATIVE: CASE EVENT DATE: 20190502
